FAERS Safety Report 4684502-9 (Version None)
Quarter: 2005Q2

REPORT INFORMATION
  Report Type: 
  Country: None (occurrence: None)
  Receive Date: 20050531
  Receipt Date: 20041216
  Transmission Date: 20051028
  Serious: Yes (Hospitalization)
  Sender: FDA-Public Use
  Company Number: US_0409105908

PATIENT
  Age: 11 Year
  Sex: Male

DRUGS (12)
  1. ZYPREXA [Suspect]
     Indication: EATING DISORDER
     Dosage: 5 MG
     Dates: start: 20011020, end: 20030714
  2. STRATTERA [Suspect]
     Dosage: 25 MG
  3. PATANOL [Concomitant]
  4. REMERON (MIRTAZAPINE ORIFARM) [Concomitant]
  5. ZITHROMAX [Concomitant]
  6. DEXTROAMPHETAMINE (DEXAMFETAMINE) [Concomitant]
  7. METHYLPHENIDATE HCL [Concomitant]
  8. CONCERTA [Concomitant]
  9. AMOXICILLIN [Concomitant]
  10. RITALIN LA [Concomitant]
  11. ADDERALL XR 15 [Concomitant]
  12. QUINDAL HD PLUS [Concomitant]

REACTIONS (2)
  - DIABETES MELLITUS [None]
  - DIABETIC KETOACIDOSIS [None]
